FAERS Safety Report 10190960 (Version 1)
Quarter: 2014Q2

REPORT INFORMATION
  Report Type: Report from Study
  Country: US (occurrence: US)
  Receive Date: 20140523
  Receipt Date: 20140523
  Transmission Date: 20141212
  Serious: Yes (Hospitalization)
  Sender: FDA-Public Use
  Company Number: US-JNJFOC-20140510838

PATIENT
  Sex: 0

DRUGS (6)
  1. REMICADE [Suspect]
     Indication: IRITIS
     Route: 042
     Dates: start: 20131010, end: 2013
  2. REMICADE [Suspect]
     Indication: IRITIS
     Route: 042
     Dates: start: 20130911
  3. REMICADE [Suspect]
     Indication: IRITIS
     Route: 042
     Dates: start: 20130828
  4. REMICADE [Suspect]
     Indication: RHEUMATOID ARTHRITIS
     Route: 042
     Dates: start: 20130911
  5. REMICADE [Suspect]
     Indication: RHEUMATOID ARTHRITIS
     Route: 042
     Dates: start: 20130828
  6. REMICADE [Suspect]
     Indication: RHEUMATOID ARTHRITIS
     Route: 042
     Dates: start: 20131010, end: 2013

REACTIONS (2)
  - Coccidioidomycosis [Unknown]
  - Off label use [Unknown]
